FAERS Safety Report 9235813 (Version 1)
Quarter: 2013Q2

REPORT INFORMATION
  Report Type: Spontaneous
  Country: US (occurrence: None)
  Receive Date: 20130416
  Receipt Date: 20130416
  Transmission Date: 20140414
  Serious: Yes (Disabling)
  Sender: FDA-Public Use
  Company Number: None

PATIENT
  Age: 65 Year
  Sex: Female
  Weight: 59.88 kg

DRUGS (1)
  1. SMZ?TMP DS 800-160 [Suspect]
     Indication: URINARY TRACT INFECTION
     Dosage: 1 DOSE 2 TIMES DAILY PO
     Route: 048
     Dates: start: 20130412, end: 20130414

REACTIONS (1)
  - Hallucination, visual [None]
